FAERS Safety Report 12832052 (Version 2)
Quarter: 2016Q4

REPORT INFORMATION
  Report Type: Spontaneous
  Country: US (occurrence: US)
  Receive Date: 20161010
  Receipt Date: 20161129
  Transmission Date: 20170207
  Serious: No
  Sender: FDA-Public Use
  Company Number: US-AMGEN-USASP2016131410

PATIENT
  Age: 37 Year
  Sex: Female

DRUGS (5)
  1. NAPROXEN. [Concomitant]
     Active Substance: NAPROXEN
     Indication: SPONDYLITIS
     Dosage: 500 MG, BID
     Route: 048
     Dates: start: 20150915
  2. ASPIRIN. [Concomitant]
     Active Substance: ASPIRIN
     Indication: PROTEIN S DEFICIENCY
     Dosage: 81 MG, QD
     Route: 048
     Dates: start: 2011
  3. ZANTAC [Concomitant]
     Active Substance: RANITIDINE HYDROCHLORIDE
     Indication: GASTRITIS
     Dosage: 125 MG, BID
     Route: 048
     Dates: start: 20150915
  4. NORETHINDRONE. [Concomitant]
     Active Substance: NORETHINDRONE
     Indication: CONTRACEPTION
     Dosage: 35 MG, QD
     Route: 048
     Dates: start: 20151105
  5. ENBREL [Suspect]
     Active Substance: ETANERCEPT
     Indication: SPONDYLITIS
     Dosage: 50 MG, QWK
     Route: 058
     Dates: start: 20160805

REACTIONS (1)
  - Off label use [Unknown]

NARRATIVE: CASE EVENT DATE: 20160805
